FAERS Safety Report 18488216 (Version 1)
Quarter: 2020Q4

REPORT INFORMATION
  Report Type: Spontaneous
  Country: CA (occurrence: CA)
  Receive Date: 20201111
  Receipt Date: 20201111
  Transmission Date: 20210114
  Serious: Yes (Death)
  Sender: FDA-Public Use
  Company Number: CA-REGENERON PHARMACEUTICALS, INC.-2020-87742

PATIENT

DRUGS (2)
  1. EYLEA [Suspect]
     Active Substance: AFLIBERCEPT
     Indication: PRODUCT USED FOR UNKNOWN INDICATION
     Dosage: 2 MG, UNK, EYE UNKNOWN, TOTAL OF 6 INJECTIONS
     Route: 031
     Dates: start: 20191009, end: 20200716
  2. EYLEA [Suspect]
     Active Substance: AFLIBERCEPT
     Dosage: 2 MG, ONCE, EYE UNKNOWN, LAST DOSE PRIOR TO EVENT
     Route: 031
     Dates: start: 20200716, end: 20200716

REACTIONS (1)
  - Death [Fatal]
